FAERS Safety Report 8457438-5 (Version None)
Quarter: 2012Q2

REPORT INFORMATION
  Report Type: 
  Country: None (occurrence: None)
  Receive Date: 20120621
  Receipt Date: 20120613
  Transmission Date: 20120825
  Serious: Yes (Hospitalization, Disabling, Other)
  Sender: FDA-Public Use
  Company Number: US-MERCK-1203USA03315

PATIENT
  Age: 50 Year
  Sex: Female
  Weight: 51 kg

DRUGS (7)
  1. IPRATROPIUM BROMIDE [Concomitant]
     Indication: HYPERSENSITIVITY
     Route: 065
  2. FOSAMAX [Suspect]
     Indication: OSTEOPENIA
     Route: 048
     Dates: start: 19970101, end: 20060101
  3. FLONASE [Concomitant]
     Indication: HYPERSENSITIVITY
     Route: 065
  4. FLUTICASONE [Concomitant]
     Indication: HYPERSENSITIVITY
     Route: 065
  5. CALCIUM (UNSPECIFIED) [Concomitant]
     Indication: OSTEOPENIA
     Route: 065
  6. FOSAMAX PLUS D [Suspect]
     Indication: OSTEOPENIA
     Route: 048
  7. EVISTA [Concomitant]
     Route: 065

REACTIONS (30)
  - LOW TURNOVER OSTEOPATHY [None]
  - PAIN IN EXTREMITY [None]
  - HYPERCHOLESTEROLAEMIA [None]
  - GASTROOESOPHAGEAL REFLUX DISEASE [None]
  - OSTEOARTHRITIS [None]
  - ENDOMETRIOSIS [None]
  - FEMUR FRACTURE [None]
  - OVARIAN DISORDER [None]
  - NODULE [None]
  - MEDICAL DEVICE DISCOMFORT [None]
  - ANGIOPATHY [None]
  - DEEP VEIN THROMBOSIS [None]
  - GINGIVAL DISORDER [None]
  - JOINT STIFFNESS [None]
  - ARTHRITIS [None]
  - GAIT DISTURBANCE [None]
  - FOOT DEFORMITY [None]
  - CONTUSION [None]
  - PELVIC FLUID COLLECTION [None]
  - VAGINAL INFECTION [None]
  - STRESS FRACTURE [None]
  - VITAMIN D DEFICIENCY [None]
  - RASH [None]
  - MUSCULOSKELETAL DISORDER [None]
  - SPINAL OSTEOARTHRITIS [None]
  - FALL [None]
  - OSTEOPOROSIS [None]
  - BARTHOLIN'S CYST [None]
  - HYPERTENSION [None]
  - TENDERNESS [None]
